FAERS Safety Report 4433636-2 (Version None)
Quarter: 2004Q3

REPORT INFORMATION
  Report Type: 
  Country: None (occurrence: None)
  Receive Date: 20040826
  Receipt Date: 20040720
  Transmission Date: 20050211
  Serious: Yes (Hospitalization)
  Sender: FDA-Public Use
  Company Number: PHRM2004FR02378

PATIENT
  Age: 56 Year
  Sex: Female

DRUGS (6)
  1. LESCOL [Suspect]
     Dosage: 80 MG/DAY
     Route: 048
     Dates: start: 20031201, end: 20040401
  2. DOMPERIDONE [Suspect]
     Route: 048
  3. OGAST [Suspect]
     Route: 048
  4. VIOXX [Suspect]
     Route: 048
  5. DI-ANTALVIC [Suspect]
     Route: 048
  6. SECTRAL [Suspect]
     Indication: ESSENTIAL HYPERTENSION
     Dosage: 100 MG/DAY
     Route: 048

REACTIONS (17)
  - ANAEMIA MACROCYTIC [None]
  - ANTINUCLEAR ANTIBODY POSITIVE [None]
  - APLASTIC ANAEMIA [None]
  - ASPARTATE AMINOTRANSFERASE INCREASED [None]
  - AUTOIMMUNE HEPATITIS [None]
  - AUTOIMMUNE THYROIDITIS [None]
  - CHOLESTASIS [None]
  - COAGULATION FACTOR V LEVEL DECREASED [None]
  - CYTOLYTIC HEPATITIS [None]
  - HEPATIC CIRRHOSIS [None]
  - HEPATOMEGALY [None]
  - HYPOALBUMINAEMIA [None]
  - PROTHROMBIN LEVEL DECREASED [None]
  - RENAL FAILURE [None]
  - RHABDOMYOLYSIS [None]
  - SERUM FERRITIN INCREASED [None]
  - SMOOTH MUSCLE ANTIBODY POSITIVE [None]
